FAERS Safety Report 22734352 (Version 2)
Quarter: 2023Q4

REPORT INFORMATION
  Report Type: Spontaneous
  Country: US (occurrence: US)
  Receive Date: 20230721
  Receipt Date: 20231025
  Transmission Date: 20240109
  Serious: No
  Sender: FDA-Public Use
  Company Number: US-SA-SAC20230718000698

PATIENT
  Age: 67 Year
  Sex: Female

DRUGS (1)
  1. DUPIXENT [Suspect]
     Active Substance: DUPILUMAB
     Dosage: 300 MG, FREQUENCY: OTHER
     Route: 058
     Dates: start: 20230714, end: 20230714

REACTIONS (10)
  - Migraine [Unknown]
  - Diarrhoea [Unknown]
  - Visual impairment [Unknown]
  - Stomatitis [Unknown]
  - Toothache [Unknown]
  - Dizziness [Unknown]
  - Pruritus [Unknown]
  - Arthralgia [Unknown]
  - Rash [Unknown]
  - Drug hypersensitivity [Unknown]

NARRATIVE: CASE EVENT DATE: 20230101
